FAERS Safety Report 5988202-4 (Version None)
Quarter: 2008Q4

REPORT INFORMATION
  Report Type: 
  Country: None (occurrence: None)
  Receive Date: 20081210
  Receipt Date: 20081203
  Transmission Date: 20090506
  Serious: Yes (Death)
  Sender: FDA-Public Use
  Company Number: CA-BRISTOL-MYERS SQUIBB COMPANY-14434815

PATIENT
  Age: 72 Year
  Sex: Female

DRUGS (5)
  1. IXABEPILONE [Suspect]
     Route: 042
     Dates: start: 20080922
  2. CLOXACILLIN [Concomitant]
  3. ONDANSETRON [Concomitant]
     Dosage: 3 TIMES DAILY FOR 10 DAYS GIVEN
  4. DEXAMETHASONE [Concomitant]
  5. GABAPENTIN [Concomitant]

REACTIONS (2)
  - MALIGNANT NEOPLASM PROGRESSION [None]
  - SEPSIS [None]
